FAERS Safety Report 23623565 (Version 1)
Quarter: 2024Q1

REPORT INFORMATION
  Report Type: Spontaneous
  Country: AU (occurrence: AU)
  Receive Date: 20240312
  Receipt Date: 20240312
  Transmission Date: 20240410
  Serious: Yes (Other)
  Sender: FDA-Public Use
  Company Number: AU-TAKEDA-2024TUS021938

PATIENT
  Sex: Male

DRUGS (6)
  1. PANTOPRAZOLE [Suspect]
     Active Substance: PANTOPRAZOLE
     Dosage: 40 MILLIGRAM
     Route: 065
     Dates: start: 20221101
  2. DEXAMETHASONE SODIUM PHOSPHATE [Suspect]
     Active Substance: DEXAMETHASONE PHOSPHATE\DEXAMETHASONE SODIUM PHOSPHATE
     Dosage: 20 MILLIGRAM
     Route: 065
  3. ETOPOSIDE [Suspect]
     Active Substance: ETOPOSIDE
     Dosage: 70 MILLIGRAM, QID
     Route: 065
  4. ASPIRIN [Concomitant]
     Active Substance: ASPIRIN
     Dosage: 100 MILLIGRAM
     Dates: start: 20221101
  5. TICAGRELOR [Concomitant]
     Active Substance: TICAGRELOR
     Dosage: 180 MILLIGRAM, QD
     Dates: start: 20221101
  6. TRIMETHOPRIM [Concomitant]
     Active Substance: TRIMETHOPRIM
     Dosage: UNK
     Dates: start: 20221108

REACTIONS (3)
  - Condition aggravated [Unknown]
  - Haemophagocytic lymphohistiocytosis [Unknown]
  - Multiple organ dysfunction syndrome [Unknown]
